FAERS Safety Report 11337984 (Version 1)
Quarter: 2015Q3

REPORT INFORMATION
  Report Type: Spontaneous
  Country: US (occurrence: US)
  Receive Date: 20150803
  Receipt Date: 20150803
  Transmission Date: 20151125
  Serious: Yes (Other)
  Sender: FDA-Public Use
  Company Number: US-ELI_LILLY_AND_COMPANY-US201004004836

PATIENT
  Age: 36 Year
  Sex: Female

DRUGS (4)
  1. PROPOXYPHENE. [Concomitant]
     Active Substance: PROPOXYPHENE
     Dosage: 1 D/F, AS NEEDED
  2. TRIAZOLAM. [Concomitant]
     Active Substance: TRIAZOLAM
     Dosage: UNK, EACH EVENING
  3. ZYPREXA [Suspect]
     Active Substance: OLANZAPINE
     Indication: DEPRESSION
     Dosage: 15 MG, DAILY (1/D)
     Dates: start: 200708
  4. FLUOXETINE [Concomitant]
     Active Substance: FLUOXETINE\FLUOXETINE HYDROCHLORIDE

REACTIONS (11)
  - Abnormal behaviour [Unknown]
  - Intervertebral disc protrusion [Unknown]
  - Arthritis [Unknown]
  - Decreased appetite [Unknown]
  - Nervousness [Unknown]
  - Drug withdrawal syndrome [Unknown]
  - Apathy [Unknown]
  - Weight increased [Not Recovered/Not Resolved]
  - Crying [Unknown]
  - Road traffic accident [Unknown]
  - Intervertebral disc degeneration [Unknown]

NARRATIVE: CASE EVENT DATE: 20100122
